FAERS Safety Report 5356815-9 (Version None)
Quarter: 2007Q2

REPORT INFORMATION
  Report Type: 
  Country: None (occurrence: None)
  Receive Date: 20070614
  Receipt Date: 20070307
  Transmission Date: 20071010
  Serious: No
  Sender: FDA-Public Use
  Company Number: US-ASTRAZENECA-2007UW04295

PATIENT
  Age: 57 Year
  Sex: Female
  Weight: 104.3 kg

DRUGS (21)
  1. ATACAND [Suspect]
     Indication: HYPERTENSION
     Route: 048
     Dates: start: 20070201
  2. HUMALOG [Concomitant]
  3. ACIPHEX [Concomitant]
  4. ADVAIR DISKUS 100/50 [Concomitant]
  5. ALBUTEROL [Concomitant]
  6. AMILORIDE HYDROCHLORIDE [Concomitant]
  7. ASPIRIN [Concomitant]
  8. BUSPAR [Concomitant]
  9. DILANTIN [Concomitant]
  10. FOLATE [Concomitant]
  11. FUROSEMIDE [Concomitant]
  12. KORCAN [Concomitant]
  13. MECLIZINE [Concomitant]
  14. NASONEX [Concomitant]
  15. NITROGLYCERIN [Concomitant]
  16. SYNTHROID [Concomitant]
  17. TOPROL-XL [Concomitant]
  18. ZETIA [Concomitant]
  19. CRESTOR [Concomitant]
     Route: 048
  20. COUMADIN [Concomitant]
  21. OXYGEN [Concomitant]

REACTIONS (3)
  - BACK PAIN [None]
  - DIZZINESS [None]
  - VISUAL DISTURBANCE [None]
